FAERS Safety Report 5353634-4 (Version None)
Quarter: 2007Q2

REPORT INFORMATION
  Report Type: 
  Country: None (occurrence: None)
  Receive Date: 20070608
  Receipt Date: 20070601
  Transmission Date: 20071010
  Serious: Yes (Death)
  Sender: FDA-Public Use
  Company Number: DSJ-2007-02854

PATIENT
  Age: 75 Year
  Sex: Male
  Weight: 54 kg

DRUGS (13)
  1. OLMESARTAN MEDOXOMIL [Suspect]
     Indication: ESSENTIAL HYPERTENSION
     Dosage: 10 MG (10 MG, 1 IN 1 D), PER ORAL
     Route: 048
     Dates: start: 20061122, end: 20070130
  2. KELNAC (PLAUNOTOL) (CAPSULE) (FLAUNOTOL) [Concomitant]
  3. ADALAT CR (NIFEDIPINE) (NIFEDIPINE) [Concomitant]
  4. DAONIL (GLIBENCLAMIDE) (GLIBENCLAMIDE) [Concomitant]
  5. SEIBULE (MIGLITOL) (MIGLITOL) [Concomitant]
  6. BAYASPIRIN (ACETYLSALICYLIC ACID) (ACETYLSALICYLIC ACID) [Concomitant]
  7. LENDORMIN (BROTIZOLAM) (TABLET) (BROTIZOLAM) [Concomitant]
  8. FRANDOL (ISOSORBIDE DINITRATE) (POULTICE OR PATCH) (ISOSORBIDE DINITRA [Concomitant]
  9. TAKEPRON (LANSOPRAZOLE) (LANSOPRAZOLE) [Concomitant]
  10. MARZULENE S (LEVOGLUTAMIDE, SODIUM GUALENATE) (LEVOGLUTAMIDE, SODIUM G [Concomitant]
  11. KAMA (MAGNESIUM OXIDE) (MAGNESIUM OXIDE) [Concomitant]
  12. SERMION (NICERGOLINE) (TABLET) (NICERGOLINE) [Concomitant]
  13. MEXITIL (MEXILETINE HYDROCHLORIDE) (MEXILETINE HYDROCHLORIDE) [Concomitant]

REACTIONS (5)
  - ANAEMIA [None]
  - ANOREXIA [None]
  - CARDIAC FAILURE [None]
  - HYPOTENSION [None]
  - MALNUTRITION [None]
